FAERS Safety Report 5587991-0 (Version None)
Quarter: 2008Q1

REPORT INFORMATION
  Report Type: 
  Country: None (occurrence: None)
  Receive Date: 20080109
  Receipt Date: 20080109
  Transmission Date: 20080703
  Serious: Yes (Disabling)
  Sender: FDA-Public Use
  Company Number: None

PATIENT
  Age: 56 Year
  Sex: Male
  Weight: 72.5755 kg

DRUGS (1)
  1. ABILIFY [Suspect]
     Indication: DEPRESSION
     Dosage: 2.5 MG EVERY OTHER DAY ORAL
     Route: 048
     Dates: start: 20031101, end: 20061001

REACTIONS (4)
  - AKATHISIA [None]
  - GASTROINTESTINAL MOTILITY DISORDER [None]
  - RESPIRATORY DYSKINESIA [None]
  - TARDIVE DYSKINESIA [None]
